FAERS Safety Report 9636727 (Version 1)
Quarter: 2013Q4

REPORT INFORMATION
  Report Type: Report from Study
  Country: US (occurrence: US)
  Receive Date: 20131022
  Receipt Date: 20131022
  Transmission Date: 20140711
  Serious: Yes (Hospitalization, Other)
  Sender: FDA-Public Use
  Company Number: US-ABBVIE-13P-163-1158308-00

PATIENT
  Sex: Male

DRUGS (4)
  1. HUMIRA [Suspect]
     Indication: PSORIASIS
     Dates: start: 2010
  2. NORVASC [Concomitant]
     Indication: HYPERTENSION
  3. HYZAAR [Concomitant]
     Indication: HYPERTENSION
     Dates: end: 201306
  4. HYZAAR [Concomitant]
     Dates: start: 201308

REACTIONS (6)
  - Joint dislocation [Recovered/Resolved]
  - Muscle strain [Recovered/Resolved]
  - Joint dislocation [Recovered/Resolved]
  - Joint dislocation [Recovered/Resolved]
  - Joint dislocation [Recovered/Resolved]
  - Musculoskeletal pain [Recovering/Resolving]
